FAERS Safety Report 20634998 (Version 1)
Quarter: 2022Q1

REPORT INFORMATION
  Report Type: Spontaneous
  Country: US (occurrence: US)
  Receive Date: 20220325
  Receipt Date: 20220325
  Transmission Date: 20220423
  Serious: No
  Sender: FDA-Public Use
  Company Number: US-GSKCCFUS-Case-01330233_AE-77345

PATIENT
  Age: 69 Year
  Sex: Female

DRUGS (1)
  1. TRELEGY ELLIPTA [Suspect]
     Active Substance: FLUTICASONE FUROATE\UMECLIDINIUM BROMIDE\VILANTEROL TRIFENATATE
     Indication: Product used for unknown indication
     Dosage: 1 PUFF(S), QD, 100/62.5/25 MCG
     Route: 055
     Dates: start: 202109, end: 2021

REACTIONS (11)
  - Diarrhoea [Recovered/Resolved]
  - Muscle spasms [Recovered/Resolved]
  - Dysphonia [Recovered/Resolved]
  - Headache [Recovered/Resolved]
  - Fatigue [Recovered/Resolved]
  - Arthralgia [Not Recovered/Not Resolved]
  - Cough [Recovered/Resolved]
  - Back pain [Recovered/Resolved]
  - Dysgeusia [Recovered/Resolved]
  - Chest pain [Recovered/Resolved]
  - Epistaxis [Recovered/Resolved]

NARRATIVE: CASE EVENT DATE: 20210101
